FAERS Safety Report 14931595 (Version 4)
Quarter: 2018Q3

REPORT INFORMATION
  Report Type: Spontaneous
  Country: JP (occurrence: JP)
  Receive Date: 20180524
  Receipt Date: 20180723
  Transmission Date: 20181010
  Serious: Yes (Hospitalization, Congenital Anomaly)
  Sender: FDA-Public Use
  Company Number: JP-ASTELLAS-2018JP009124

PATIENT
  Age: 0 Day
  Sex: Female
  Weight: 2 kg

DRUGS (24)
  1. MAGNESIUM OXIDE. [Concomitant]
     Active Substance: MAGNESIUM OXIDE
     Route: 064
     Dates: start: 20171209, end: 20171210
  2. RINDERON                           /00008501/ [Concomitant]
     Active Substance: BETAMETHASONE
     Indication: FOETAL EXPOSURE DURING PREGNANCY
     Route: 064
     Dates: start: 20171013, end: 20171014
  3. MEROPEN                            /01250501/ [Concomitant]
     Active Substance: MEROPENEM
     Indication: FOETAL EXPOSURE DURING PREGNANCY
     Dosage: 0.5 G, THRICE DAILY
     Route: 064
     Dates: start: 20171218, end: 20171223
  4. PREDNISOLONE. [Concomitant]
     Active Substance: PREDNISOLONE
     Route: 064
     Dates: start: 20170530, end: 2017
  5. MAGNESIUM OXIDE. [Concomitant]
     Active Substance: MAGNESIUM OXIDE
     Route: 064
     Dates: start: 20171207, end: 20171208
  6. PROGE [Concomitant]
     Indication: FOETAL EXPOSURE DURING PREGNANCY
     Route: 064
     Dates: start: 20171019, end: 20171223
  7. SLOW K [Concomitant]
     Active Substance: POTASSIUM CHLORIDE
     Indication: FOETAL EXPOSURE DURING PREGNANCY
     Route: 064
     Dates: start: 20171212, end: 2017
  8. GASTER [Suspect]
     Active Substance: FAMOTIDINE
     Indication: FOETAL EXPOSURE DURING PREGNANCY
     Route: 064
     Dates: start: 2017
  9. GASTER [Suspect]
     Active Substance: FAMOTIDINE
     Route: 064
     Dates: end: 20170529
  10. GASTER [Suspect]
     Active Substance: FAMOTIDINE
     Route: 064
     Dates: start: 20170530, end: 20171223
  11. HUSCODE [Concomitant]
     Active Substance: CHLORPHENIRAMINE MALEAT\DIHYDROCODEINE PHOSPHATE\METHYLEPHEDRINE HYDROCHLORIDE, DL-
     Indication: FOETAL EXPOSURE DURING PREGNANCY
     Dosage: 10 ML/DAY, THRICE DAILY
     Route: 064
     Dates: start: 20170815, end: 2017
  12. MAGNESIUM OXIDE. [Concomitant]
     Active Substance: MAGNESIUM OXIDE
     Indication: FOETAL EXPOSURE DURING PREGNANCY
     Route: 064
     Dates: start: 2017, end: 20171201
  13. GLUCOSE [Concomitant]
     Active Substance: DEXTROSE
     Indication: FOETAL EXPOSURE DURING PREGNANCY
     Route: 064
     Dates: start: 2017, end: 2017
  14. PHYSIOLOGICAL SALINE SOLUTION [Concomitant]
     Active Substance: SODIUM CHLORIDE
     Indication: FOETAL EXPOSURE DURING PREGNANCY
     Route: 064
     Dates: start: 20171213, end: 20171213
  15. MUCODYNE [Concomitant]
     Active Substance: CARBOCYSTEINE
     Indication: FOETAL EXPOSURE DURING PREGNANCY
     Route: 064
     Dates: start: 20170815, end: 2017
  16. UTEMERIN [Concomitant]
     Active Substance: RITODRINE
     Indication: FOETAL EXPOSURE DURING PREGNANCY
     Route: 064
     Dates: start: 20171012, end: 20171223
  17. MAGNESIUM OXIDE. [Concomitant]
     Active Substance: MAGNESIUM OXIDE
     Route: 064
     Dates: start: 20171202, end: 20171203
  18. MAGSENT [Concomitant]
     Active Substance: DEXTROSE\MAGNESIUM SULFATE HEPTAHYDRATE
     Indication: FOETAL EXPOSURE DURING PREGNANCY
     Route: 064
     Dates: start: 20171017, end: 20171223
  19. PREDNISOLONE. [Concomitant]
     Active Substance: PREDNISOLONE
     Indication: FOETAL EXPOSURE DURING PREGNANCY
     Route: 064
     Dates: start: 2017, end: 20170529
  20. ADONA                              /00056903/ [Concomitant]
     Active Substance: CARBAZOCHROME SODIUM SULFONATE
     Indication: FOETAL EXPOSURE DURING PREGNANCY
     Route: 064
     Dates: start: 20170612, end: 2017
  21. PROGRAF [Suspect]
     Active Substance: TACROLIMUS\TACROLIMUS ANHYDROUS
     Indication: FOETAL EXPOSURE DURING PREGNANCY
     Dosage: DOSE BEING INCREASED AND REDUCED BETWEEN 3 MG AND 1 MG, ONCE DAILY
     Route: 064
     Dates: start: 2017, end: 2017
  22. DACTIL [Concomitant]
     Indication: FOETAL EXPOSURE DURING PREGNANCY
     Route: 064
     Dates: start: 20170612, end: 2017
  23. MAGNESIUM OXIDE. [Concomitant]
     Active Substance: MAGNESIUM OXIDE
     Route: 064
     Dates: start: 20171204, end: 20171206
  24. MAGNESIUM OXIDE. [Concomitant]
     Active Substance: MAGNESIUM OXIDE
     Route: 064
     Dates: start: 20171211, end: 2017

REACTIONS (2)
  - Jaundice neonatal [Recovered/Resolved]
  - Low birth weight baby [Recovered/Resolved]

NARRATIVE: CASE EVENT DATE: 20171223
